FAERS Safety Report 6927819-7 (Version None)
Quarter: 2010Q3

REPORT INFORMATION
  Report Type: 
  Country: None (occurrence: None)
  Receive Date: 20100817
  Receipt Date: 20100809
  Transmission Date: 20110219
  Serious: Yes (Hospitalization)
  Sender: FDA-Public Use
  Company Number: FR-JNJFOC-20100803769

PATIENT
  Sex: Male
  Weight: 83 kg

DRUGS (9)
  1. DURAGESIC-100 [Suspect]
     Indication: PAIN
     Route: 062
     Dates: start: 20100706, end: 20100710
  2. VELCADE [Concomitant]
     Indication: MULTIPLE MYELOMA
     Route: 042
  3. BENDAMUSTINE [Concomitant]
     Indication: MULTIPLE MYELOMA
     Route: 042
  4. DEXAMETHASONE [Concomitant]
     Indication: MULTIPLE MYELOMA
     Route: 048
  5. APROVEL [Concomitant]
     Indication: HYPERTENSION
     Route: 048
  6. BISOPROLOL [Concomitant]
     Indication: HYPERTENSION
     Route: 048
  7. FLECAINIDE ACETATE [Concomitant]
     Indication: HYPERTENSION
     Route: 048
  8. EUROBIOL [Concomitant]
     Indication: PANCREATIC INSUFFICIENCY
     Route: 048
  9. EFFERALGAN CODEINE [Concomitant]
     Indication: PAIN
     Route: 048

REACTIONS (6)
  - CONFUSIONAL STATE [None]
  - DEHYDRATION [None]
  - DISORIENTATION [None]
  - HALLUCINATION, VISUAL [None]
  - OVERDOSE [None]
  - RENAL FAILURE ACUTE [None]
